FAERS Safety Report 7435953-0 (Version None)
Quarter: 2011Q2

REPORT INFORMATION
  Report Type: 
  Country: None (occurrence: None)
  Receive Date: 20110425
  Receipt Date: 20110411
  Transmission Date: 20111010
  Serious: Yes (Other)
  Sender: FDA-Public Use
  Company Number: US-BAYER-2011-032404

PATIENT
  Age: 93 Year
  Sex: Male
  Weight: 57 kg

DRUGS (3)
  1. ALEVE (CAPLET) [Suspect]
  2. COZAAR [Concomitant]
  3. IMODIUM [Concomitant]

REACTIONS (1)
  - DEAFNESS [None]
